FAERS Safety Report 10051445 (Version 1)
Quarter: 2014Q2

REPORT INFORMATION
  Report Type: Spontaneous
  Country: FR (occurrence: FR)
  Receive Date: 20140401
  Receipt Date: 20140401
  Transmission Date: 20141212
  Serious: Yes (Hospitalization)
  Sender: FDA-Public Use
  Company Number: FR-ASTRAZENECA-2014SE22010

PATIENT
  Age: 29200 Day
  Sex: Male

DRUGS (6)
  1. INEXIUM [Suspect]
     Route: 048
     Dates: end: 20140216
  2. PLAVIX [Concomitant]
  3. SOTALOL [Concomitant]
  4. PERMIXON [Concomitant]
  5. XATRAL SR [Concomitant]
  6. OMACOR [Concomitant]

REACTIONS (7)
  - General physical health deterioration [Unknown]
  - Weight decreased [Unknown]
  - Hyponatraemia [Recovered/Resolved]
  - Dizziness [Unknown]
  - Vomiting [Unknown]
  - Oedema peripheral [Unknown]
  - Constipation [Unknown]
